FAERS Safety Report 25013686 (Version 1)
Quarter: 2025Q1

REPORT INFORMATION
  Report Type: Spontaneous
  Country: US (occurrence: US)
  Receive Date: 20250226
  Receipt Date: 20250226
  Transmission Date: 20250409
  Serious: No
  Sender: UCB
  Company Number: US-UCBSA-2023061130

PATIENT
  Sex: Male

DRUGS (1)
  1. KEPPRA [Suspect]
     Active Substance: LEVETIRACETAM
     Indication: Seizure
     Dates: end: 20190311

REACTIONS (4)
  - Affective disorder [Unknown]
  - Epilepsy surgery [Unknown]
  - Vagal nerve stimulator implantation [Unknown]
  - Adverse drug reaction [Unknown]
